FAERS Safety Report 5571137-9 (Version None)
Quarter: 2007Q4

REPORT INFORMATION
  Report Type: 
  Country: None (occurrence: None)
  Receive Date: 20071221
  Receipt Date: 20061107
  Transmission Date: 20080405
  Serious: No
  Sender: FDA-Public Use
  Company Number: A0626557A

PATIENT
  Age: 75 Year
  Sex: Male

DRUGS (8)
  1. FLONASE [Suspect]
     Dosage: 4SPR PER DAY
     Route: 045
     Dates: start: 20060106
  2. ASPIRIN [Concomitant]
  3. DIOVAN [Concomitant]
  4. NORVASC [Concomitant]
  5. TOPROL-XL [Concomitant]
  6. ZOCOR [Concomitant]
  7. TERAZOSIN HCL [Concomitant]
  8. POTASSIUM CHLORIDE [Concomitant]

REACTIONS (1)
  - DRUG INEFFECTIVE [None]
